FAERS Safety Report 4779116-6 (Version None)
Quarter: 2005Q3

REPORT INFORMATION
  Report Type: 
  Country: None (occurrence: None)
  Receive Date: 20050926
  Receipt Date: 20050531
  Transmission Date: 20060218
  Serious: Yes (Disabling)
  Sender: FDA-Public Use
  Company Number: US-MERCK-0505USA03503

PATIENT
  Age: 67 Year
  Sex: Female
  Weight: 53 kg

DRUGS (7)
  1. DECADRON [Suspect]
     Indication: MULTIPLE MYELOMA
     Route: 048
     Dates: start: 20040204, end: 20040224
  2. THALOMID [Suspect]
     Indication: MULTIPLE MYELOMA
     Route: 048
     Dates: start: 20040204, end: 20040201
  3. ZOMETA [Concomitant]
     Route: 065
  4. ATENOLOL [Concomitant]
     Route: 065
  5. LIPITOR [Concomitant]
     Route: 065
  6. LEVOTHROID [Concomitant]
     Route: 065
  7. DARVOCET-N 100 [Concomitant]
     Route: 065

REACTIONS (20)
  - ABASIA [None]
  - AGEUSIA [None]
  - ANXIETY [None]
  - ASTHENIA [None]
  - CERUMEN IMPACTION [None]
  - CONFUSIONAL STATE [None]
  - DIZZINESS [None]
  - EAR PAIN [None]
  - FALL [None]
  - FEELING JITTERY [None]
  - MALAISE [None]
  - NAUSEA [None]
  - ORTHOSTATIC HYPOTENSION [None]
  - PAIN [None]
  - PAIN IN EXTREMITY [None]
  - PHARYNGOLARYNGEAL PAIN [None]
  - RASH [None]
  - URTICARIA [None]
  - VISUAL DISTURBANCE [None]
  - VOMITING [None]
